FAERS Safety Report 7719486-X (Version None)
Quarter: 2011Q3

REPORT INFORMATION
  Report Type: 
  Country: None (occurrence: None)
  Receive Date: 20110830
  Receipt Date: 20110815
  Transmission Date: 20111222
  Serious: Yes (Hospitalization, Other)
  Sender: FDA-Public Use
  Company Number: US-ASTRAZENECA-2011SE10450

PATIENT
  Age: 76 Year
  Sex: Male

DRUGS (1)
  1. NEXIUM [Suspect]
     Route: 048

REACTIONS (7)
  - AMNESIA [None]
  - DIPLOPIA [None]
  - VOMITING [None]
  - BRAIN NEOPLASM [None]
  - MALAISE [None]
  - BRAIN OPERATION [None]
  - MEDICAL DEVICE COMPLICATION [None]
